FAERS Safety Report 9215250 (Version 3)
Quarter: 2013Q2

REPORT INFORMATION
  Report Type: Spontaneous
  Country: US (occurrence: US)
  Receive Date: 20130405
  Receipt Date: 20130422
  Transmission Date: 20140414
  Serious: Yes (Hospitalization, Other)
  Sender: FDA-Public Use
  Company Number: US-BAXTER-2013BAX012177

PATIENT
  Age: 65 Year
  Sex: Female

DRUGS (9)
  1. DIANEAL LOW CALCIUM [Suspect]
     Indication: PERITONEAL DIALYSIS
     Route: 033
     Dates: start: 20121023, end: 20130314
  2. DIANEAL LOW CALCIUM [Suspect]
     Route: 033
     Dates: start: 20130329
  3. DIANEAL LOW CALCIUM [Suspect]
     Indication: PERITONEAL DIALYSIS
     Route: 033
     Dates: start: 20121023, end: 20130314
  4. DIANEAL LOW CALCIUM [Suspect]
     Route: 033
     Dates: start: 20130329
  5. DIANEAL LOW CALCIUM [Suspect]
     Indication: PERITONEAL DIALYSIS
     Route: 033
     Dates: start: 20121023, end: 20130314
  6. DIANEAL LOW CALCIUM [Suspect]
     Route: 033
     Dates: start: 20130329
  7. DIANEAL LOW CALCIUM (ULTRABAG) [Suspect]
     Indication: PERITONEAL DIALYSIS
     Route: 033
  8. DIANEAL LOW CALCIUM (ULTRABAG) [Suspect]
     Indication: PERITONEAL DIALYSIS
     Route: 033
  9. DIANEAL LOW CALCIUM (ULTRABAG) [Suspect]
     Indication: PERITONEAL DIALYSIS
     Route: 033

REACTIONS (5)
  - Urinary tract infection fungal [Recovering/Resolving]
  - Cholelithiasis [Recovered/Resolved]
  - Device related sepsis [Recovering/Resolving]
  - Nausea [Recovered/Resolved]
  - Vomiting [Recovered/Resolved]
